FAERS Safety Report 10882847 (Version 1)
Quarter: 2015Q1

REPORT INFORMATION
  Report Type: Spontaneous
  Country: US (occurrence: None)
  Receive Date: 20150226
  Receipt Date: 20150226
  Transmission Date: 20150721
  Serious: Yes (Other)
  Sender: FDA-Public Use
  Company Number: None

PATIENT
  Age: 43 Year
  Sex: Female
  Weight: 81.19 kg

DRUGS (1)
  1. MARIJUANA [Suspect]
     Active Substance: CANNABIS SATIVA SUBSP. INDICA TOP
     Indication: SUBSTANCE USE
     Route: 055

REACTIONS (4)
  - Product label issue [None]
  - Malaise [None]
  - Product quality issue [None]
  - Self-medication [None]

NARRATIVE: CASE EVENT DATE: 20150224
